FAERS Safety Report 12642996 (Version 1)
Quarter: 2016Q3

REPORT INFORMATION
  Report Type: Spontaneous
  Country: US (occurrence: US)
  Receive Date: 20160811
  Receipt Date: 20160811
  Transmission Date: 20161109
  Serious: No
  Sender: FDA-Public Use
  Company Number: US-TEVA-679464ACC

PATIENT
  Age: 28 Year
  Sex: Female
  Weight: 88.53 kg

DRUGS (4)
  1. TAKE ACTION [Suspect]
     Active Substance: LEVONORGESTREL
     Indication: POST COITAL CONTRACEPTION
     Dates: start: 20160501, end: 20160501
  2. TAKE ACTION [Suspect]
     Active Substance: LEVONORGESTREL
     Dates: start: 20160514, end: 20160514
  3. TAKE ACTION [Suspect]
     Active Substance: LEVONORGESTREL
     Dates: start: 20160628, end: 20160628
  4. TAKE ACTION [Suspect]
     Active Substance: LEVONORGESTREL
     Dates: start: 20160710, end: 20160710

REACTIONS (5)
  - Vaginal haemorrhage [Not Recovered/Not Resolved]
  - Dysmenorrhoea [Not Recovered/Not Resolved]
  - Menstruation irregular [Recovered/Resolved]
  - Muscle spasms [Not Recovered/Not Resolved]
  - Breast pain [Recovered/Resolved]

NARRATIVE: CASE EVENT DATE: 20160621
